FAERS Safety Report 8455810-0 (Version None)
Quarter: 2012Q2

REPORT INFORMATION
  Report Type: 
  Country: None (occurrence: None)
  Receive Date: 20120613
  Receipt Date: 20120606
  Transmission Date: 20120825
  Serious: Yes (Hospitalization)
  Sender: FDA-Public Use
  Company Number: 2012SP030749

PATIENT
  Age: 38 Year
  Sex: Male
  Weight: 77.5 kg

DRUGS (8)
  1. METFORMIN HCL [Concomitant]
  2. VIRAFERONPEG [Suspect]
     Indication: HEPATITIS C
     Dosage: 120 MCG;QW
     Dates: start: 20120312
  3. REBETOL [Suspect]
     Indication: HEPATITIS C
     Dosage: 1200 MG;BID
     Dates: start: 20120312
  4. CRESTOR [Concomitant]
  5. REYATAZ [Suspect]
     Indication: HIV INFECTION
     Dosage: 300 MG;QD
     Dates: start: 20110518
  6. NORVIR [Concomitant]
  7. TRUVADA [Concomitant]
  8. VICTRELIS [Suspect]
     Indication: HEPATITIS C
     Dosage: 800 MG;TID
     Dates: start: 20120406

REACTIONS (1)
  - CYTOLYTIC HEPATITIS [None]
